FAERS Safety Report 7418981-0 (Version None)
Quarter: 2011Q2

REPORT INFORMATION
  Report Type: 
  Country: None (occurrence: None)
  Receive Date: 20110406
  Receipt Date: 20110331
  Transmission Date: 20111010
  Serious: Yes (Hospitalization)
  Sender: FDA-Public Use
  Company Number: CAP11000016

PATIENT
  Age: 67 Year
  Sex: Female

DRUGS (1)
  1. ACTONEL (RISEDRONATE SODIUM) TABLET, 35MG [Suspect]
     Indication: OSTEOPOROSIS
     Dosage: 35 MG ONCE WEEKLY, ORAL
     Route: 048
     Dates: start: 20040701, end: 20100601

REACTIONS (3)
  - OSTEOMYELITIS [None]
  - IMPLANT SITE ABSCESS [None]
  - TOOTH ABSCESS [None]
